FAERS Safety Report 16834002 (Version 1)
Quarter: 2019Q3

REPORT INFORMATION
  Report Type: Spontaneous
  Country: DK (occurrence: DK)
  Receive Date: 20190920
  Receipt Date: 20190920
  Transmission Date: 20191005
  Serious: Yes (Hospitalization)
  Sender: FDA-Public Use
  Company Number: DK-MYLANLABS-2019M1087540

PATIENT
  Age: 50 Year
  Sex: Male

DRUGS (3)
  1. GABAPENTIN. [Suspect]
     Active Substance: GABAPENTIN
     Indication: EPILEPSY
     Dosage: STYRKE: 300 MG.
     Route: 048
     Dates: start: 20190401, end: 20190423
  2. IMOZOP [Concomitant]
     Active Substance: ZOPICLONE
     Indication: INSOMNIA
     Dosage: STYRKE: 3,75 MG.
     Route: 048
     Dates: start: 20180918, end: 201904
  3. TOILAX [Concomitant]
     Active Substance: BISACODYL
     Indication: CONSTIPATION
     Dosage: STYRKE: 5 MG.
     Route: 048
     Dates: start: 20190125

REACTIONS (5)
  - Hypersexuality [Recovering/Resolving]
  - Aggression [Recovering/Resolving]
  - Idiosyncratic drug reaction [Recovering/Resolving]
  - Personality change [Recovering/Resolving]
  - Suicidal ideation [Recovering/Resolving]

NARRATIVE: CASE EVENT DATE: 20190407
